FAERS Safety Report 19653721 (Version 5)
Quarter: 2022Q3

REPORT INFORMATION
  Report Type: Report from Study
  Country: US (occurrence: US)
  Receive Date: 20210803
  Receipt Date: 20220801
  Transmission Date: 20221026
  Serious: Yes (Other)
  Sender: FDA-Public Use
  Company Number: US-TAKEDA-2021TUS025659

PATIENT
  Sex: Male

DRUGS (9)
  1. PONATINIB [Suspect]
     Active Substance: PONATINIB
     Indication: Chronic myeloid leukaemia
     Dosage: 45 MILLIGRAM, QD
     Route: 048
  2. PONATINIB [Suspect]
     Active Substance: PONATINIB
     Dosage: 30 MILLIGRAM, QD
     Route: 048
  3. PONATINIB [Suspect]
     Active Substance: PONATINIB
     Dosage: 15 MILLIGRAM
     Route: 048
  4. SEROQUEL XR [Concomitant]
     Active Substance: QUETIAPINE FUMARATE
     Dosage: UNK
     Route: 065
  5. TRAZODONE HCL [Concomitant]
     Active Substance: TRAZODONE HYDROCHLORIDE
     Dosage: UNK
     Route: 065
  6. PRILOSEC [Concomitant]
     Active Substance: OMEPRAZOLE MAGNESIUM
     Dosage: UNK
     Route: 065
  7. GLEEVEC [Concomitant]
     Active Substance: IMATINIB MESYLATE
     Dosage: UNK
     Route: 065
  8. METFORMIN HYDROCHLORIDE [Concomitant]
     Active Substance: METFORMIN HYDROCHLORIDE
     Indication: Diabetes mellitus
     Dosage: UNK
     Route: 065
  9. PRAZOSIN HYDROCHLORIDE [Concomitant]
     Active Substance: PRAZOSIN HYDROCHLORIDE
     Dosage: UNK
     Route: 065

REACTIONS (14)
  - Leukaemia [Unknown]
  - Thrombocytopenia [Unknown]
  - Vision blurred [Unknown]
  - Nausea [Unknown]
  - Decreased appetite [Unknown]
  - Pain [Not Recovered/Not Resolved]
  - Back pain [Unknown]
  - Contusion [Unknown]
  - Fall [Recovering/Resolving]
  - Feeling abnormal [Unknown]
  - Scab [Unknown]
  - Balance disorder [Unknown]
  - Ageusia [Unknown]
  - Product dose omission issue [Unknown]
